FAERS Safety Report 24763238 (Version 1)
Quarter: 2024Q4

REPORT INFORMATION
  Report Type: Spontaneous
  Country: US (occurrence: US)
  Receive Date: 20241222
  Receipt Date: 20241222
  Transmission Date: 20250114
  Serious: No
  Sender: ABBVIE
  Company Number: US-ABBVIE-6055820

PATIENT
  Age: 45 Year
  Sex: Female

DRUGS (2)
  1. BOTOX [Suspect]
     Active Substance: ONABOTULINUMTOXINA
     Indication: Migraine
     Dosage: TIME INTERVAL: AS NECESSARY: EVERY 10 WEEKS
     Route: 030
     Dates: start: 20240916, end: 20240916
  2. BOTOX [Suspect]
     Active Substance: ONABOTULINUMTOXINA
     Indication: Migraine
     Dosage: TIME INTERVAL: AS NECESSARY: START DATE TEXT: PROBABLY 12-14 YEARS AGO?EVERY 10 WEEKS
     Route: 030

REACTIONS (1)
  - Facial pain [Recovered/Resolved]

NARRATIVE: CASE EVENT DATE: 20230101
